FAERS Safety Report 17978568 (Version 1)
Quarter: 2020Q3

REPORT INFORMATION
  Report Type: Spontaneous
  Country: CA (occurrence: CA)
  Receive Date: 20200703
  Receipt Date: 20200703
  Transmission Date: 20201103
  Serious: Yes (Hospitalization)
  Sender: FDA-Public Use
  Company Number: CA-TEVA-2020-CA-1796196

PATIENT
  Age: 61 Year
  Sex: Male

DRUGS (18)
  1. VITAMIN C [Concomitant]
     Active Substance: ASCORBIC ACID
  2. SENNOSIDES. [Concomitant]
     Active Substance: SENNOSIDES
  3. GABAPENTIN. [Suspect]
     Active Substance: GABAPENTIN
     Dosage: 100 MG
  4. SODIUM BICARBONATE. [Concomitant]
     Active Substance: SODIUM BICARBONATE
  5. TYLENOL [Concomitant]
     Active Substance: ACETAMINOPHEN
  6. PANTOLOC [Concomitant]
     Active Substance: PANTOPRAZOLE SODIUM
  7. ARANESP [Concomitant]
     Active Substance: DARBEPOETIN ALFA
     Dosage: SOLUTION INTRAVENOUS
  8. LEVETIRACETAM. [Concomitant]
     Active Substance: LEVETIRACETAM
  9. SPIRIVA [Concomitant]
     Active Substance: TIOTROPIUM BROMIDE MONOHYDRATE
  10. GABAPENTIN. [Suspect]
     Active Substance: GABAPENTIN
     Dosage: 100 MG
  11. IRON [Concomitant]
     Active Substance: IRON
  12. FUROSEMIDE. [Concomitant]
     Active Substance: FUROSEMIDE
  13. HYDROMORPHONE [Concomitant]
     Active Substance: HYDROMORPHONE
  14. NICOTINE. [Concomitant]
     Active Substance: NICOTINE
  15. VENTOLIN [Concomitant]
     Active Substance: ALBUTEROL SULFATE
  16. BISOPROLOL [Suspect]
     Active Substance: BISOPROLOL
     Dosage: 20 MG
  17. WARFARIN [Concomitant]
     Active Substance: WARFARIN
  18. ZENHALE [Concomitant]
     Active Substance: FORMOTEROL FUMARATE\MOMETASONE FUROATE
     Dosage: AEROSOL, METERED DOSE

REACTIONS (10)
  - Hypotension [Unknown]
  - Urine output decreased [Unknown]
  - Hypoxia [Unknown]
  - Endotracheal intubation [Unknown]
  - Bradycardia [Unknown]
  - Mental status changes [Unknown]
  - Toxicity to various agents [Unknown]
  - Acute kidney injury [Unknown]
  - Metabolic acidosis [Unknown]
  - Depressed level of consciousness [Unknown]
